FAERS Safety Report 18573184 (Version 1)
Quarter: 2020Q4

REPORT INFORMATION
  Report Type: Spontaneous
  Country: US (occurrence: US)
  Receive Date: 20201203
  Receipt Date: 20201203
  Transmission Date: 20210114
  Serious: Yes (Hospitalization)
  Sender: FDA-Public Use
  Company Number: US-BRISTOL-MYERS SQUIBB COMPANY-BMS-2020-100118

PATIENT
  Sex: Female
  Weight: 43.54 kg

DRUGS (2)
  1. PREDNISONE. [Concomitant]
     Active Substance: PREDNISONE
     Indication: PRODUCT USED FOR UNKNOWN INDICATION
     Dosage: UNK
     Route: 048
  2. OPDIVO [Suspect]
     Active Substance: NIVOLUMAB
     Indication: RENAL CELL CARCINOMA
     Dosage: UNK UNK, Q2WK
     Route: 042
     Dates: start: 20200730, end: 20200909

REACTIONS (8)
  - Gait inability [Unknown]
  - Weight decreased [Unknown]
  - Dysarthria [Unknown]
  - Aphasia [Unknown]
  - Visual impairment [Unknown]
  - Eating disorder [Unknown]
  - Decreased activity [Unknown]
  - Gait disturbance [Unknown]
